FAERS Safety Report 4979708-5 (Version None)
Quarter: 2006Q2

REPORT INFORMATION
  Report Type: 
  Country: None (occurrence: None)
  Receive Date: 20060418
  Receipt Date: 20060405
  Transmission Date: 20061013
  Serious: Yes (Hospitalization)
  Sender: FDA-Public Use
  Company Number: 6021793

PATIENT
  Age: 14 Year
  Sex: Female

DRUGS (2)
  1. BISOPROLOL FUMARATE [Suspect]
     Indication: DRUG USE FOR UNKNOWN INDICATION
     Dosage: 14 DOSAGE FORMS (14 DOSAGE FORMS, 1D) ORAL
     Route: 048
     Dates: start: 20051005, end: 20051005
  2. DI-ANTALVIC (CAPSULE) (PARACETAMOL, DEXTROPROPOXYPHENE) [Suspect]
     Indication: DRUG USE FOR UNKNOWN INDICATION
     Dosage: 19 DOSAGE FROMS (19 DOSAGE FORMS, 1 D) ORAL
     Route: 048
     Dates: start: 20051005, end: 20051005

REACTIONS (6)
  - ATRIOVENTRICULAR BLOCK FIRST DEGREE [None]
  - MULTIPLE DRUG OVERDOSE INTENTIONAL [None]
  - PROTHROMBIN TIME PROLONGED [None]
  - SOMNOLENCE [None]
  - SUICIDE ATTEMPT [None]
  - VOMITING [None]
